FAERS Safety Report 8422521-7 (Version None)
Quarter: 2012Q2

REPORT INFORMATION
  Report Type: 
  Country: None (occurrence: None)
  Receive Date: 20120604
  Receipt Date: 20120518
  Transmission Date: 20120825
  Serious: Yes (Other)
  Sender: FDA-Public Use
  Company Number: DE-1192428

PATIENT
  Age: 45 Year
  Sex: Female

DRUGS (2)
  1. DOXYCYCLINE [Suspect]
  2. CILOXAN [Suspect]

REACTIONS (1)
  - STEVENS-JOHNSON SYNDROME [None]
